FAERS Safety Report 18234750 (Version 1)
Quarter: 2020Q3

REPORT INFORMATION
  Report Type: Report from Study
  Country: PA (occurrence: PA)
  Receive Date: 20200904
  Receipt Date: 20200904
  Transmission Date: 20201103
  Serious: Yes (Other)
  Sender: FDA-Public Use
  Company Number: PHHY2016PA050669

PATIENT
  Age: 78 Year
  Sex: Female

DRUGS (4)
  1. TASIGNA [Suspect]
     Active Substance: NILOTINIB
     Dosage: 200 MG
     Route: 065
     Dates: end: 202007
  2. TASIGNA [Suspect]
     Active Substance: NILOTINIB
     Indication: PRODUCT USED FOR UNKNOWN INDICATION
     Dosage: 4 DF, QD
     Route: 065
  3. TASIGNA [Suspect]
     Active Substance: NILOTINIB
     Dosage: 200 MG, QD (ONCE DAILY)
     Route: 065
  4. TASIGNA [Suspect]
     Active Substance: NILOTINIB
     Dosage: 1 DF, QD
     Route: 065

REACTIONS (13)
  - Asthenia [Unknown]
  - Pallor [Unknown]
  - Blood pressure increased [Unknown]
  - Bone pain [Not Recovered/Not Resolved]
  - Body surface area decreased [Unknown]
  - Inappropriate schedule of product administration [Unknown]
  - Leukaemia [Unknown]
  - Nausea [Recovering/Resolving]
  - Fatigue [Unknown]
  - Mood altered [Unknown]
  - Malaise [Unknown]
  - Discomfort [Recovering/Resolving]
  - Drug intolerance [Unknown]
